FAERS Safety Report 20297921 (Version 1)
Quarter: 2022Q1

REPORT INFORMATION
  Report Type: Spontaneous
  Country: US (occurrence: US)
  Receive Date: 20220105
  Receipt Date: 20220105
  Transmission Date: 20220423
  Serious: Yes (Hospitalization)
  Sender: FDA-Public Use
  Company Number: US-drreddys-LIT/USA/22/0145591

PATIENT
  Age: 18 Year
  Sex: Male

DRUGS (7)
  1. QUETIAPINE FUMARATE [Suspect]
     Active Substance: QUETIAPINE FUMARATE
     Indication: Psychomotor hyperactivity
  2. OLANZAPINE [Suspect]
     Active Substance: OLANZAPINE
     Indication: Psychotic disorder
  3. OLANZAPINE [Suspect]
     Active Substance: OLANZAPINE
  4. LORAZEPAM [Suspect]
     Active Substance: LORAZEPAM
     Indication: Psychomotor hyperactivity
  5. ZIPRASIDONE [Suspect]
     Active Substance: ZIPRASIDONE
     Indication: Psychomotor hyperactivity
  6. CHLORPROMAZINE [Suspect]
     Active Substance: CHLORPROMAZINE
     Indication: Psychomotor hyperactivity
  7. VALPROIC ACID [Suspect]
     Active Substance: VALPROIC ACID
     Indication: Agitation

REACTIONS (1)
  - Catatonia [Recovering/Resolving]
